FAERS Safety Report 9308559 (Version 2)
Quarter: 2013Q4

REPORT INFORMATION
  Report Type: Spontaneous
  Country: US (occurrence: US)
  Receive Date: 20130524
  Receipt Date: 20131007
  Transmission Date: 20140711
  Serious: Yes (Hospitalization, Congenital Anomaly, Other)
  Sender: FDA-Public Use
  Company Number: US-PFIZER INC-2013156933

PATIENT
  Sex: Female

DRUGS (6)
  1. ZOLOFT [Suspect]
     Dosage: UNK
     Route: 064
     Dates: start: 1995
  2. LIPITOR [Concomitant]
     Dosage: UNK
     Route: 064
  3. RHINOCORT [Concomitant]
     Dosage: UNK
     Route: 064
  4. WELLBUTRIN [Concomitant]
     Dosage: UNK
     Route: 064
  5. TYLENOL [Concomitant]
     Dosage: UNK
     Route: 064
  6. PRENATAL VITAMINS [Concomitant]
     Dosage: UNK
     Route: 064

REACTIONS (5)
  - Maternal exposure during pregnancy [Unknown]
  - Patent ductus arteriosus [Unknown]
  - Persistent foetal circulation [Unknown]
  - Atrial septal defect [Unknown]
  - Congenital anomaly [Unknown]
